FAERS Safety Report 9614702 (Version 1)
Quarter: 2013Q4

REPORT INFORMATION
  Report Type: Spontaneous
  Country: US (occurrence: None)
  Receive Date: 20131009
  Receipt Date: 20131009
  Transmission Date: 20140711
  Serious: Yes (Death, Life-Threatening, Hospitalization)
  Sender: FDA-Public Use
  Company Number: None

PATIENT
  Age: 80 Year
  Sex: Female
  Weight: 75 kg

DRUGS (2)
  1. DABIGATRAN [Suspect]
     Indication: HEPATIC VEIN THROMBOSIS
     Dates: start: 20130831, end: 20130902
  2. DRONEDARONE [Concomitant]

REACTIONS (1)
  - Haematemesis [None]
